FAERS Safety Report 17188927 (Version 1)
Quarter: 2019Q4

REPORT INFORMATION
  Report Type: Report from Study
  Country: None (occurrence: GB)
  Receive Date: 20191222
  Receipt Date: 20191222
  Transmission Date: 20200122
  Serious: Yes (Hospitalization)
  Sender: FDA-Public Use
  Company Number: GB-ABBVIE-19K-167-3201106-00

PATIENT
  Age: 73 Year
  Sex: Male

DRUGS (3)
  1. HYRIMOZ [Suspect]
     Active Substance: ADALIMUMAB-ADAZ
     Indication: ANKYLOSING SPONDYLITIS
     Route: 065
     Dates: start: 20190923
  2. HYRIMOZ [Suspect]
     Active Substance: ADALIMUMAB-ADAZ
     Route: 065
  3. ADALIMUMAB [Suspect]
     Active Substance: ADALIMUMAB
     Indication: PRODUCT USED FOR UNKNOWN INDICATION
     Route: 058

REACTIONS (7)
  - Gastrooesophageal reflux disease [Unknown]
  - Vomiting [Unknown]
  - Eating disorder [Unknown]
  - Abdominal hernia [Unknown]
  - Nausea [Unknown]
  - Malaise [Recovering/Resolving]
  - Concomitant disease aggravated [Recovering/Resolving]
